FAERS Safety Report 6853997-4 (Version None)
Quarter: 2010Q3

REPORT INFORMATION
  Report Type: 
  Country: None (occurrence: None)
  Receive Date: 20100717
  Receipt Date: 20080201
  Transmission Date: 20110219
  Serious: No
  Sender: FDA-Public Use
  Company Number: US-PFIZER INC-2007103816

PATIENT
  Age: 68 Year
  Sex: Male
  Weight: 81.8 kg

DRUGS (4)
  1. CHANTIX [Suspect]
     Indication: SMOKING CESSATION THERAPY
     Dates: start: 20071203
  2. ACETYLSALICYLIC ACID [Concomitant]
  3. GABAPENTIN [Concomitant]
  4. OXYCODONE HCL [Concomitant]

REACTIONS (2)
  - FEELING ABNORMAL [None]
  - HEADACHE [None]
